FAERS Safety Report 4971614-5 (Version None)
Quarter: 2006Q2

REPORT INFORMATION
  Report Type: 
  Country: None (occurrence: None)
  Receive Date: 20060413
  Receipt Date: 20060403
  Transmission Date: 20061013
  Serious: Yes (Hospitalization)
  Sender: FDA-Public Use
  Company Number: FR-JNJFOC-20060400756

PATIENT
  Age: 80 Year
  Sex: Female
  Weight: 65 kg

DRUGS (7)
  1. RISPERDAL [Suspect]
     Route: 048
  2. RISPERDAL [Suspect]
     Route: 048
  3. SERESTA [Suspect]
     Indication: PERSONALITY DISORDER
     Route: 048
  4. STABLON [Suspect]
     Indication: PERSONALITY DISORDER
     Route: 048
  5. VADILEX [Concomitant]
  6. HYTACAND [Concomitant]
  7. HYTACAND [Concomitant]

REACTIONS (6)
  - ABNORMAL BEHAVIOUR [None]
  - ANKLE FRACTURE [None]
  - DEPRESSION [None]
  - FALL [None]
  - HYPOTENSION [None]
  - RIB FRACTURE [None]
